FAERS Safety Report 25322361 (Version 2)
Quarter: 2025Q3

REPORT INFORMATION
  Report Type: Spontaneous
  Country: JP (occurrence: JP)
  Receive Date: 20250516
  Receipt Date: 20250804
  Transmission Date: 20251021
  Serious: Yes (Other)
  Sender: MERCK SHARP & DOHME LLC
  Company Number: JP-009507513-2285229

PATIENT
  Age: 8 Decade
  Sex: Male

DRUGS (3)
  1. KEYTRUDA [Suspect]
     Active Substance: PEMBROLIZUMAB
     Indication: Oesophageal squamous cell carcinoma stage IV
  2. CISPLATIN [Suspect]
     Active Substance: CISPLATIN
     Indication: Oesophageal squamous cell carcinoma stage IV
  3. FLUOROURACIL [Suspect]
     Active Substance: FLUOROURACIL
     Indication: Oesophageal squamous cell carcinoma stage IV

REACTIONS (10)
  - Corneal opacity [Unknown]
  - Visual acuity reduced [Unknown]
  - Lip swelling [Unknown]
  - Therapy partial responder [Unknown]
  - Malignant neoplasm progression [Unknown]
  - Stevens-Johnson syndrome [Unknown]
  - Dry eye [Unknown]
  - Pyrexia [Unknown]
  - Immune-mediated dermatitis [Recovered/Resolved]
  - Mucosal disorder [Unknown]
